FAERS Safety Report 14990400 (Version 1)
Quarter: 2018Q2

REPORT INFORMATION
  Report Type: Spontaneous
  Country: US (occurrence: US)
  Receive Date: 20180520
  Receipt Date: 20180520
  Transmission Date: 20180711
  Serious: No
  Sender: FDA-Public Use
  Company Number: None

PATIENT
  Age: 73 Year
  Sex: Male
  Weight: 84.6 kg

DRUGS (15)
  1. ASPIRIN 81 MG [Concomitant]
     Active Substance: ASPIRIN
  2. COFFEE [Concomitant]
     Active Substance: ARABICA COFFEE BEAN\COFFEE BEAN
  3. WELLBUTRIN [Concomitant]
     Active Substance: BUPROPION HYDROCHLORIDE
  4. LUMIGAN [Concomitant]
     Active Substance: BIMATOPROST
  5. GABAPENTIN. [Concomitant]
     Active Substance: GABAPENTIN
  6. LOZARTAN [Concomitant]
  7. MULTIVITAMIN [Concomitant]
     Active Substance: VITAMINS
  8. ATENOLOL. [Concomitant]
     Active Substance: ATENOLOL
  9. AMLODIPINE [Concomitant]
     Active Substance: AMLODIPINE BESYLATE
  10. VITAMIN D3 [Concomitant]
     Active Substance: CHOLECALCIFEROL
  11. STELARA [Suspect]
     Active Substance: USTEKINUMAB
     Indication: PSORIASIS
     Dates: start: 20180515, end: 20180515
  12. COMBIGAN [Concomitant]
     Active Substance: BRIMONIDINE TARTRATE\TIMOLOL MALEATE
  13. PACEMAKER [Concomitant]
  14. EZETIMIBE. [Concomitant]
     Active Substance: EZETIMIBE
  15. FISH OIL [Concomitant]
     Active Substance: FISH OIL

REACTIONS (2)
  - Hypotension [None]
  - Fatigue [None]

NARRATIVE: CASE EVENT DATE: 20180515
